FAERS Safety Report 7009502-5 (Version None)
Quarter: 2010Q3

REPORT INFORMATION
  Report Type: 
  Country: None (occurrence: None)
  Receive Date: 20100903
  Receipt Date: 20100727
  Transmission Date: 20110219
  Serious: Yes (Death)
  Sender: FDA-Public Use
  Company Number: 163-22393-10070015

PATIENT
  Age: 42 Year
  Sex: Male

DRUGS (1)
  1. ISTODAX [Suspect]
     Indication: NEOPLASM MALIGNANT
     Dosage: 27MG, PER WEEK X 2 WEEKS, PIGGYBACK
     Dates: start: 20100616, end: 20100630

REACTIONS (1)
  - NEOPLASM PROGRESSION [None]
